FAERS Safety Report 7878911-4 (Version None)
Quarter: 2011Q4

REPORT INFORMATION
  Report Type: 
  Country: None (occurrence: None)
  Receive Date: 20111025
  Receipt Date: 20110308
  Transmission Date: 20120403
  Serious: Yes (Other)
  Sender: FDA-Public Use
  Company Number: 2011BH005284

PATIENT
  Age: 14 Month
  Sex: Male
  Weight: 10.4 kg

DRUGS (9)
  1. ADVATE [Suspect]
     Indication: FACTOR VIII DEFICIENCY
     Dosage: 250 IU;2X A WEEK;IV ; AS NEEDED;IV ; AS NEEDED;IV ; AS NEEDED;IV
     Route: 042
     Dates: start: 20101115, end: 20101130
  2. ADVATE [Suspect]
     Indication: FACTOR VIII DEFICIENCY
     Dosage: 250 IU;2X A WEEK;IV ; AS NEEDED;IV ; AS NEEDED;IV ; AS NEEDED;IV
     Route: 042
     Dates: start: 20100601, end: 20100601
  3. ADVATE [Suspect]
     Indication: FACTOR VIII DEFICIENCY
     Dosage: 250 IU;2X A WEEK;IV ; AS NEEDED;IV ; AS NEEDED;IV ; AS NEEDED;IV
     Route: 042
     Dates: start: 20100301, end: 20100301
  4. ADVATE [Suspect]
     Indication: FACTOR VIII DEFICIENCY
     Dosage: 250 IU;2X A WEEK;IV ; AS NEEDED;IV ; AS NEEDED;IV ; AS NEEDED;IV
     Route: 042
     Dates: start: 20100801, end: 20100801
  5. ANTIHEMOPHILIC FACTOR (HUMAN) [Concomitant]
  6. LIDOCAINE [Concomitant]
  7. ADVATE [Suspect]
  8. ADVATE [Suspect]
  9. AMICAR [Concomitant]

REACTIONS (1)
  - FACTOR VIII INHIBITION [None]
